FAERS Safety Report 25958105 (Version 1)
Quarter: 2025Q4

REPORT INFORMATION
  Report Type: Report from Study
  Country: EU (occurrence: EU)
  Receive Date: 20251024
  Receipt Date: 20251024
  Transmission Date: 20260117
  Serious: Yes (Other)
  Sender: MYLAN
  Company Number: EU-ROCHE-10000288431

PATIENT
  Age: 69 Year
  Sex: Male

DRUGS (9)
  1. PREDNISONE [Suspect]
     Active Substance: PREDNISONE
     Indication: Diffuse large B-cell lymphoma
     Dosage: 500 MILLIGRAM, Q21D (ON 28-APR-2025, HE RECEIVED HIS MOST RECENT DOSE OF PREDNISONE (100 MG) PRIOR TO THROMBOEMBOLIC EVENTFREQUENCY: DAY 1 TO DAY 5 OF EACH CYCLE (EVERY 21 DAYS))
     Dates: start: 20250311
  2. DOXORUBICIN [Suspect]
     Active Substance: DOXORUBICIN
     Indication: Diffuse large B-cell lymphoma
     Dosage: 93 MILLIGRAM, Q21D (ON 03-APR-2025, HE RECEIVED HIS MOST RECENT DOSE OF DOXORUBICIN (93 MG) PRIOR TO THROMBOEMBOLIC EVENT)
     Dates: start: 20250311
  3. DOXORUBICIN [Suspect]
     Active Substance: DOXORUBICIN
     Dosage: UNK
  4. POLATUZUMAB VEDOTIN [Suspect]
     Active Substance: POLATUZUMAB VEDOTIN
     Indication: Diffuse large B-cell lymphoma
     Dosage: 124.2 MILLIGRAM, Q21D (ON 03-APR-2025, HE RECEIVED HIS MOST RECENT DOSE OF POLATUZUMAB VEDOTIN(124.2 MG) PRIOR TO THROMBOEMBOLIC EVENT)
     Dates: start: 20250311
  5. POLATUZUMAB VEDOTIN [Suspect]
     Active Substance: POLATUZUMAB VEDOTIN
     Dosage: UNK
  6. RITUXIMAB [Suspect]
     Active Substance: RITUXIMAB
     Indication: Diffuse large B-cell lymphoma
     Dosage: 700 MILLIGRAM, Q21D (ON 03-APR-2025, HE RECEIVED HIS MOST RECENT DOSE OF RITUXIMAB (700 MG) PRIOR TO THROMBOEMBOLIC EVENT)
     Dates: start: 20250311
  7. RITUXIMAB [Suspect]
     Active Substance: RITUXIMAB
     Dosage: UNK
  8. CYCLOPHOSPHAMIDE [Suspect]
     Active Substance: CYCLOPHOSPHAMIDE
     Indication: Diffuse large B-cell lymphoma
     Dosage: 1395 MILLIGRAM, Q21D (ON 03-APR-2025, HE RECEIVED HIS MOST RECENT DOSE OF CYCLOPHOSPHAMIDE (1395 MG) PRIOR TO THROMBOEMBOLIC EVENT)
     Dates: start: 20250311
  9. CYCLOPHOSPHAMIDE [Suspect]
     Active Substance: CYCLOPHOSPHAMIDE
     Dosage: UNK

REACTIONS (4)
  - Embolism venous [Not Recovered/Not Resolved]
  - Oedema peripheral [Recovered/Resolved]
  - Back pain [Recovered/Resolved]
  - Dysuria [Recovered/Resolved]

NARRATIVE: CASE EVENT DATE: 20250402
